FAERS Safety Report 7066559-3 (Version None)
Quarter: 2010Q4

REPORT INFORMATION
  Report Type: 
  Country: None (occurrence: None)
  Receive Date: 20101027
  Receipt Date: 20100719
  Transmission Date: 20110411
  Serious: No
  Sender: FDA-Public Use
  Company Number: US-WYE-H15788410

PATIENT
  Sex: Female
  Weight: 47.67 kg

DRUGS (7)
  1. PREMPRO [Suspect]
     Indication: HOT FLUSH
     Dosage: UNKNOWN
  2. VICODIN [Concomitant]
  3. DULOXETINE HYDROCHLORIDE [Concomitant]
  4. ACETYLSALICYLIC ACID [Concomitant]
  5. ESCITALOPRAM OXALATE [Concomitant]
  6. DURAGESIC-100 [Concomitant]
  7. XANAX [Concomitant]

REACTIONS (1)
  - DRUG INEFFECTIVE [None]
